FAERS Safety Report 4881746-8 (Version None)
Quarter: 2005Q4

REPORT INFORMATION
  Report Type: 
  Country: None (occurrence: None)
  Receive Date: 20051201
  Receipt Date: 20050722
  Transmission Date: 20060501
  Serious: No
  Sender: FDA-Public Use
  Company Number: 2005PV000589

PATIENT
  Age: 69 Year
  Sex: Female
  Weight: 112.4921 kg

DRUGS (15)
  1. BYETTA [Suspect]
     Indication: DIABETES MELLITUS NON-INSULIN-DEPENDENT
     Dosage: 5 MCG; BID; SC
     Route: 058
     Dates: start: 20050701
  2. ACTOS [Concomitant]
  3. ASPIRIN [Concomitant]
  4. ATACAND [Concomitant]
  5. QUINAPRIL [Concomitant]
  6. MOTRIN [Concomitant]
  7. HYDROCHLOROTHIAZIDE [Concomitant]
  8. K-DUR 10 [Concomitant]
  9. ARANESP [Concomitant]
  10. LIPITOR [Concomitant]
  11. XALATAN [Concomitant]
  12. COSOPT [Concomitant]
  13. PLEXION [Concomitant]
  14. GLUCOTROL [Concomitant]
  15. FOLTX [Concomitant]

REACTIONS (1)
  - INJECTION SITE BRUISING [None]
